FAERS Safety Report 4384726-4 (Version None)
Quarter: 2004Q2

REPORT INFORMATION
  Report Type: 
  Country: None (occurrence: None)
  Receive Date: 20040621
  Receipt Date: 20040608
  Transmission Date: 20050107
  Serious: Yes (Other)
  Sender: FDA-Public Use
  Company Number: 2004-0006914

PATIENT
  Age: 44 Year
  Sex: Female
  Weight: 78 kg

DRUGS (9)
  1. ADEFOVIR DIPIVOXIL (ADEFOVIR DIPIVOXIL) [Suspect]
     Indication: HEPATITIS B
     Dosage: SEE IMAGE
     Route: 048
     Dates: start: 20030711, end: 20031204
  2. ADEFOVIR DIPIVOXIL (ADEFOVIR DIPIVOXIL) [Suspect]
     Indication: HEPATITIS B
     Dosage: SEE IMAGE
     Route: 048
     Dates: start: 20031205
  3. PARACETAMOL (PARACETAMOL) [Concomitant]
  4. THYROXINE (LEVOTHYROXINE SODIUM) [Concomitant]
  5. PHYTONADIONE [Concomitant]
  6. BACTRIM [Concomitant]
  7. PANTOPRAZOLE (PANTOPRAZOLE) [Concomitant]
  8. LACTULOSE [Concomitant]
  9. CELEBREX [Concomitant]

REACTIONS (16)
  - ALANINE AMINOTRANSFERASE INCREASED [None]
  - ARTHRALGIA [None]
  - ASCITES [None]
  - ASPARTATE AMINOTRANSFERASE INCREASED [None]
  - BLOOD ALBUMIN DECREASED [None]
  - BLOOD ALKALINE PHOSPHATASE INCREASED [None]
  - BLOOD BILIRUBIN INCREASED [None]
  - BLOOD CREATININE DECREASED [None]
  - CREATININE RENAL CLEARANCE INCREASED [None]
  - DIARRHOEA INFECTIOUS [None]
  - ENCEPHALOPATHY [None]
  - HYPONATRAEMIA [None]
  - MUCOSAL INFLAMMATION [None]
  - NEUROPATHY PERIPHERAL [None]
  - OSTEOPENIA [None]
  - PAIN IN EXTREMITY [None]
